FAERS Safety Report 19208479 (Version 1)
Quarter: 2021Q2

REPORT INFORMATION
  Report Type: Spontaneous
  Country: IT (occurrence: IT)
  Receive Date: 20210503
  Receipt Date: 20210503
  Transmission Date: 20210717
  Serious: Yes (Other)
  Sender: FDA-Public Use
  Company Number: IT-PFIZER INC-2021453247

PATIENT
  Age: 77 Year
  Sex: Male

DRUGS (4)
  1. SUCCINYLCHOLINE CHLORIDE. [Suspect]
     Active Substance: SUCCINYLCHOLINE CHLORIDE
     Indication: ANAESTHESIA
     Dosage: 1 DF FREQ:{TOTAL};
     Route: 042
     Dates: start: 20190627, end: 20190627
  2. FENTANEST [Suspect]
     Active Substance: FENTANYL CITRATE
     Indication: PERIOPERATIVE ANALGESIA
     Dosage: 1 DF FREQ:{TOTAL};
     Route: 042
     Dates: start: 20190627, end: 20190627
  3. PROPOFOL. [Suspect]
     Active Substance: PROPOFOL
     Indication: ANAESTHESIA
     Dosage: 1 DF FREQ:{TOTAL};
     Route: 042
     Dates: start: 20190627, end: 20190627
  4. CEFTRIAXONE. [Concomitant]
     Active Substance: CEFTRIAXONE
     Indication: ANTIBIOTIC PROPHYLAXIS
     Dosage: 1 DF, 1X/DAY
     Route: 048
     Dates: start: 20190626, end: 20190627

REACTIONS (2)
  - Laryngeal oedema [Recovered/Resolved]
  - Hypersensitivity [Recovered/Resolved]

NARRATIVE: CASE EVENT DATE: 20190627
